FAERS Safety Report 5130245-7 (Version None)
Quarter: 2006Q4

REPORT INFORMATION
  Report Type: 
  Country: None (occurrence: None)
  Receive Date: 20061013
  Receipt Date: 20060928
  Transmission Date: 20070319
  Serious: Yes (Hospitalization)
  Sender: FDA-Public Use
  Company Number: REM_00264_2006

PATIENT
  Age: 45 Year
  Sex: Female
  Weight: 52 kg

DRUGS (5)
  1. REMODULIN [Suspect]
     Indication: PULMONARY HYPERTENSION
     Dosage: 88 NG/KG/MIN CONTINUOUS IV
     Route: 042
     Dates: start: 20040301
  2. COUMADIN [Concomitant]
  3. DIGOXIN [Concomitant]
  4. ULTRAM [Concomitant]
  5. OXYGEN [Concomitant]

REACTIONS (23)
  - ADVERSE DRUG REACTION [None]
  - BACTERIA BLOOD IDENTIFIED [None]
  - BACTERIAL INFECTION [None]
  - CATHETER SEPSIS [None]
  - CENTRAL LINE INFECTION [None]
  - CHILLS [None]
  - COUGH [None]
  - CULTURE POSITIVE [None]
  - DECREASED APPETITE [None]
  - DYSPNOEA [None]
  - ENTEROBACTER INFECTION [None]
  - HEADACHE [None]
  - MALAISE [None]
  - NEUTROPENIA [None]
  - PYREXIA [None]
  - RESPIRATORY DISTRESS [None]
  - STAPHYLOCOCCAL INFECTION [None]
  - TACHYCARDIA [None]
  - THROMBOCYTOPENIA [None]
  - TRANSAMINASES INCREASED [None]
  - VISION BLURRED [None]
  - VITREOUS HAEMORRHAGE [None]
  - WHITE BLOOD CELL COUNT DECREASED [None]
